FAERS Safety Report 5262187-0 (Version None)
Quarter: 2007Q1

REPORT INFORMATION
  Report Type: 
  Country: None (occurrence: None)
  Receive Date: 20070312
  Receipt Date: 20070226
  Transmission Date: 20070707
  Serious: Yes (Hospitalization)
  Sender: FDA-Public Use
  Company Number: PHHO2006FR05415

PATIENT
  Age: 10 Year
  Sex: Male
  Weight: 25.8 kg

DRUGS (1)
  1. EXJADE [Suspect]
     Indication: BLOOD IRON INCREASED
     Dosage: 30 MG/KG, QD
     Route: 048
     Dates: start: 20040128, end: 20060403

REACTIONS (5)
  - COUGH [None]
  - GLOMERULONEPHRITIS [None]
  - HAEMATURIA [None]
  - PROTEINURIA [None]
  - PYREXIA [None]
